FAERS Safety Report 23469409 (Version 1)
Quarter: 2024Q1

REPORT INFORMATION
  Report Type: Spontaneous
  Country: US (occurrence: US)
  Receive Date: 20240202
  Receipt Date: 20240202
  Transmission Date: 20240410
  Serious: Yes (Life-Threatening, Hospitalization, Other)
  Sender: FDA-Public Use
  Company Number: None

PATIENT
  Age: 6 Decade
  Sex: Male

DRUGS (4)
  1. CYCLOPHOSPHAMIDE [Suspect]
     Active Substance: CYCLOPHOSPHAMIDE
     Indication: Enteropathy-associated T-cell lymphoma
  2. DOXORUBICIN [Suspect]
     Active Substance: DOXORUBICIN
     Indication: Enteropathy-associated T-cell lymphoma
  3. PREDNISONE [Suspect]
     Active Substance: PREDNISONE
     Indication: Enteropathy-associated T-cell lymphoma
  4. VINCRISTINE [Suspect]
     Active Substance: VINCRISTINE
     Indication: Enteropathy-associated T-cell lymphoma

REACTIONS (8)
  - Pneumoperitoneum [Unknown]
  - Tumour necrosis [Unknown]
  - Gallbladder rupture [Unknown]
  - Cholecystitis acute [Unknown]
  - Gastrointestinal haemorrhage [Unknown]
  - Septic shock [Unknown]
  - Pulmonary embolism [Unknown]
  - Deep vein thrombosis [Unknown]
